FAERS Safety Report 8620723-8 (Version None)
Quarter: 2012Q3

REPORT INFORMATION
  Report Type: 
  Country: None (occurrence: None)
  Receive Date: 20120816
  Receipt Date: 20120816
  Transmission Date: 20120928
  Serious: Yes (Hospitalization)
  Sender: FDA-Public Use
  Company Number: None

PATIENT
  Age: 30 Year
  Sex: Female
  Weight: 106.6 kg

DRUGS (3)
  1. CARBOPLATIN [Suspect]
     Indication: ENDOMETRIAL CANCER
     Dosage: CARBOAUC5
     Dates: start: 20120806, end: 20120806
  2. RIDAFOROLIMUS [Suspect]
     Indication: ENDOMETRIAL CANCER
     Dosage: RIDAFOROLIMUS 20MG PO QD
     Route: 048
     Dates: start: 20120807, end: 20120810
  3. PACLITAXEL [Suspect]
     Indication: ENDOMETRIAL CANCER
     Dosage: TAXOL 175MG/M2
     Dates: start: 20120807, end: 20120810

REACTIONS (5)
  - BLOOD POTASSIUM DECREASED [None]
  - NAUSEA [None]
  - VOMITING [None]
  - DIARRHOEA [None]
  - PYREXIA [None]
